FAERS Safety Report 14508335 (Version 3)
Quarter: 2019Q1

REPORT INFORMATION
  Report Type: Report from Study
  Country: FR (occurrence: FR)
  Receive Date: 20180209
  Receipt Date: 20190204
  Transmission Date: 20190417
  Serious: Yes (Other)
  Sender: FDA-Public Use
  Company Number: FR-ROCHE-2065228

PATIENT

DRUGS (4)
  1. PEG-INTERFERON ALFA 2A [Suspect]
     Active Substance: PEGINTERFERON ALFA-2A
     Dosage: FIRST MONTH OF COMBINATION
     Route: 065
  2. PEG-INTERFERON ALFA 2A [Suspect]
     Active Substance: PEGINTERFERON ALFA-2A
     Indication: CHRONIC MYELOID LEUKAEMIA
     Dosage: FIRST MONTH
     Route: 065
  3. PEG-INTERFERON ALFA 2A [Suspect]
     Active Substance: PEGINTERFERON ALFA-2A
     Dosage: 2 TO 24 MONTHS OF COMBINATION IN ARM B
     Route: 065
  4. NILOTINIB [Suspect]
     Active Substance: NILOTINIB
     Indication: CHRONIC MYELOID LEUKAEMIA
     Dosage: (M0 TO M24, ARM B)
     Route: 065

REACTIONS (11)
  - Pancytopenia [Unknown]
  - Neutropenia [Unknown]
  - Peripheral arterial occlusive disease [Unknown]
  - Pericarditis [Unknown]
  - Angiopathy [Unknown]
  - Thrombocytopenia [Unknown]
  - Palpitations [Unknown]
  - Anal fissure [Unknown]
  - Leukopenia [Unknown]
  - Haemolytic anaemia [Unknown]
  - Cardiac disorder [Unknown]
